FAERS Safety Report 9633297 (Version 1)
Quarter: 2013Q4

REPORT INFORMATION
  Report Type: Spontaneous
  Country: CN (occurrence: CN)
  Receive Date: 20131021
  Receipt Date: 20131021
  Transmission Date: 20140711
  Serious: Yes (Other)
  Sender: FDA-Public Use
  Company Number: CN-PFIZER INC-2013298094

PATIENT
  Sex: 0

DRUGS (1)
  1. SUTENT [Suspect]
     Indication: LEIOMYOSARCOMA
     Dosage: 50 MG, 1X/DAY, 4 WEEKS ON/2 WEEKS OFF
     Route: 048
     Dates: start: 201309

REACTIONS (2)
  - Hydrothorax [Recovering/Resolving]
  - Off label use [Unknown]
